FAERS Safety Report 19666383 (Version 1)
Quarter: 2021Q3

REPORT INFORMATION
  Report Type: Spontaneous
  Country: IT (occurrence: IT)
  Receive Date: 20210806
  Receipt Date: 20210806
  Transmission Date: 20211014
  Serious: Yes (Other)
  Sender: FDA-Public Use
  Company Number: IT-SA-2021SA043749

PATIENT
  Age: 77 Year
  Sex: Female

DRUGS (16)
  1. FLUOROURACIL. [Suspect]
     Active Substance: FLUOROURACIL
     Indication: ADENOCARCINOMA OF COLON
     Dosage: 2,400 MG/MQ OVER 46 H
     Route: 042
     Dates: start: 2019, end: 2019
  2. FLUOROURACIL. [Suspect]
     Active Substance: FLUOROURACIL
     Dosage: UNK UNK, QCY
     Route: 042
  3. FOLINIC ACID [Suspect]
     Active Substance: LEUCOVORIN
     Indication: ADENOCARCINOMA OF COLON
     Dosage: 200 MG/M2, QCY
     Route: 042
     Dates: start: 201901, end: 201901
  4. PANITUMUMAB [Suspect]
     Active Substance: PANITUMUMAB
     Dosage: 25% DOSE REDUCTION
     Route: 065
  5. PANITUMUMAB [Suspect]
     Active Substance: PANITUMUMAB
     Dosage: 25% DOSE REDUCTION
     Route: 065
  6. OXALIPLATIN. [Suspect]
     Active Substance: OXALIPLATIN
     Indication: ADENOCARCINOMA OF COLON
     Dosage: INFUSION, 85 MG/M2
     Route: 042
     Dates: start: 201901, end: 201901
  7. OXALIPLATIN. [Suspect]
     Active Substance: OXALIPLATIN
     Indication: METASTASES TO PERITONEUM
     Dosage: INFUSION, 85 MG/M2
     Route: 042
     Dates: start: 2019, end: 2019
  8. FOLINIC ACID [Suspect]
     Active Substance: LEUCOVORIN
     Indication: METASTASES TO PERITONEUM
     Dosage: 200 MG/M2, QCY
     Route: 042
     Dates: start: 2019, end: 2019
  9. PANITUMUMAB [Suspect]
     Active Substance: PANITUMUMAB
     Indication: ADENOCARCINOMA OF COLON
     Dosage: 6 MILLIGRAM/KILOGRAM
     Route: 065
     Dates: start: 201901, end: 201901
  10. PANITUMUMAB [Suspect]
     Active Substance: PANITUMUMAB
     Dosage: 6 MILLIGRAM/KILOGRAM
     Route: 065
     Dates: start: 2019, end: 2019
  11. OXALIPLATIN. [Suspect]
     Active Substance: OXALIPLATIN
     Dosage: 25% DOSE REDUCTION
     Route: 042
  12. FLUOROURACIL. [Suspect]
     Active Substance: FLUOROURACIL
     Indication: METASTASES TO PERITONEUM
     Dosage: 2,400 MG/MQ OVER 46 H
     Route: 042
     Dates: start: 201901, end: 201901
  13. FOLINIC ACID [Suspect]
     Active Substance: LEUCOVORIN
     Dosage: 25% DOSE REDUCTION
     Route: 042
  14. OXALIPLATIN. [Suspect]
     Active Substance: OXALIPLATIN
     Dosage: 25% DOSE REDUCTION
     Route: 042
  15. FLUOROURACIL. [Suspect]
     Active Substance: FLUOROURACIL
     Dosage: UNK UNK, QCY
     Route: 042
  16. FOLINIC ACID [Suspect]
     Active Substance: LEUCOVORIN
     Dosage: 25% DOSE REDUCTION
     Route: 042

REACTIONS (4)
  - Diarrhoea [Unknown]
  - Neuropathy peripheral [Unknown]
  - Palmar-plantar erythrodysaesthesia syndrome [Unknown]
  - Stomatitis [Unknown]

NARRATIVE: CASE EVENT DATE: 2019
